FAERS Safety Report 5924635-X (Version None)
Quarter: 2008Q4

REPORT INFORMATION
  Report Type: 
  Country: None (occurrence: None)
  Receive Date: 20081020
  Receipt Date: 20081010
  Transmission Date: 20090506
  Serious: Yes (Death, Other)
  Sender: FDA-Public Use
  Company Number: JP-ABBOTT-08P-087-0482584-00

PATIENT
  Age: 74 Year
  Sex: Male

DRUGS (14)
  1. LEUPROLIDE ACETATE [Suspect]
     Indication: PROSTATE CANCER STAGE IV
     Route: 058
     Dates: start: 20071120, end: 20080205
  2. BASEN OD [Concomitant]
     Indication: DIABETES MELLITUS
     Route: 048
  3. CANDESARTAN CILEXETIL [Concomitant]
     Indication: HYPERTENSION
     Route: 048
  4. BICALUTAMIDE [Concomitant]
     Indication: PROSTATE CANCER STAGE IV
     Route: 048
     Dates: start: 20080122, end: 20080212
  5. GLYBURIDE [Concomitant]
     Indication: DIABETES MELLITUS
     Route: 048
  6. ACETYLSALICYLIC ACID SRT [Concomitant]
     Indication: CEREBROVASCULAR DISORDER
     Route: 048
  7. FUROSEMIDE [Concomitant]
     Indication: RENAL IMPAIRMENT
     Route: 048
  8. NIFEDIPINE [Concomitant]
     Indication: HYPERTENSION
     Route: 048
  9. GUANABENZ ACETATE [Concomitant]
     Indication: HYPERTENSION
     Route: 048
  10. LEVOTHYROXINE SODIUM [Concomitant]
     Indication: HYPOTHYROIDISM
     Route: 048
  11. METFORMIN HCL [Concomitant]
     Indication: DIABETES MELLITUS
     Route: 048
  12. DOXORUBICIN HCL [Concomitant]
     Indication: PROSTATE CANCER STAGE IV
     Route: 050
     Dates: start: 20080214, end: 20080302
  13. CISPLATIN [Concomitant]
     Indication: PROSTATE CANCER STAGE IV
     Route: 050
     Dates: start: 20080214, end: 20080302
  14. ETOPOSIDE [Concomitant]
     Indication: PROSTATE CANCER STAGE IV
     Dates: start: 20080214, end: 20080302

REACTIONS (3)
  - DISEASE PROGRESSION [None]
  - METASTASES TO LYMPH NODES [None]
  - PROSTATE CANCER [None]
